FAERS Safety Report 25986061 (Version 1)
Quarter: 2025Q4

REPORT INFORMATION
  Report Type: Spontaneous
  Country: TW (occurrence: TW)
  Receive Date: 20251031
  Receipt Date: 20251031
  Transmission Date: 20260117
  Serious: Yes (Other)
  Sender: MERCK SHARP & DOHME LLC
  Company Number: TW-009507513-2338710

PATIENT
  Age: 54 Year
  Sex: Male

DRUGS (9)
  1. PEMBROLIZUMAB [Suspect]
     Active Substance: PEMBROLIZUMAB
     Dates: start: 20240624, end: 20240909
  2. PEMBROLIZUMAB [Suspect]
     Active Substance: PEMBROLIZUMAB
     Dates: start: 20240916, end: 20241104
  3. LENVATINIB [Suspect]
     Active Substance: LENVATINIB
     Route: 048
     Dates: start: 20250121
  4. CETUXIMAB [Suspect]
     Active Substance: CETUXIMAB
     Dates: start: 20240624, end: 2024
  5. CISPLATIN [Suspect]
     Active Substance: CISPLATIN
     Dates: start: 20240624, end: 20240909
  6. DOCETAXEL [Suspect]
     Active Substance: DOCETAXEL
     Dates: start: 20240624, end: 20240909
  7. FLUOROURACIL [Suspect]
     Active Substance: FLUOROURACIL
     Dates: start: 20240624, end: 20240909
  8. EPIRUBICIN [Suspect]
     Active Substance: EPIRUBICIN
     Dates: start: 20240624, end: 20240909
  9. METHOTREXATE [Suspect]
     Active Substance: METHOTREXATE
     Dates: start: 20240624, end: 20240909

REACTIONS (1)
  - Squamous cell carcinoma of head and neck [Unknown]

NARRATIVE: CASE EVENT DATE: 20240101
